FAERS Safety Report 8733212 (Version 2)
Quarter: 2012Q4

REPORT INFORMATION
  Report Type: 
  Country: US (occurrence: US)
  Receive Date: 20120821
  Receipt Date: 20121025
  Transmission Date: 20130627
  Serious: Yes (Hospitalization)
  Sender: FDA-Public Use
  Company Number: US-BIOGENIDEC-2012BI031665

PATIENT
  Age: 62 Year
  Sex: Female

DRUGS (3)
  1. TYSABRI [Suspect]
     Indication: MULTIPLE SCLEROSIS
     Route: 042
     Dates: start: 20120618
  2. TIZANIDINE [Concomitant]
     Indication: MUSCLE SPASMS
  3. TOPROL [Concomitant]

REACTIONS (2)
  - Breast cellulitis [Recovered/Resolved]
  - Hypotension [Recovered/Resolved]
